FAERS Safety Report 20844030 (Version 2)
Quarter: 2022Q4

REPORT INFORMATION
  Report Type: Spontaneous
  Country: US (occurrence: US)
  Receive Date: 20220518
  Receipt Date: 20221115
  Transmission Date: 20230113
  Serious: Yes (Death, Other)
  Sender: FDA-Public Use
  Company Number: US-BRISTOL-MYERS SQUIBB COMPANY-2022-038054

PATIENT
  Age: 98 Year
  Sex: Female

DRUGS (2)
  1. ELIQUIS [Suspect]
     Active Substance: APIXABAN
     Indication: Product used for unknown indication
     Dosage: 5 MG TWICE A DAY
     Route: 048
     Dates: start: 202103
  2. ELIQUIS [Suspect]
     Active Substance: APIXABAN
     Route: 048
     Dates: start: 202202

REACTIONS (1)
  - Coronary artery disease [Fatal]

NARRATIVE: CASE EVENT DATE: 20220424
